FAERS Safety Report 13627753 (Version 1)
Quarter: 2017Q2

REPORT INFORMATION
  Report Type: Spontaneous
  Country: US (occurrence: US)
  Receive Date: 20170608
  Receipt Date: 20170608
  Transmission Date: 20170830
  Serious: No
  Sender: FDA-Public Use
  Company Number: None

PATIENT
  Age: 23 Year
  Sex: Female
  Weight: 67.95 kg

DRUGS (1)
  1. DAPSONE. [Suspect]
     Active Substance: DAPSONE
     Indication: URTICARIA CHOLINERGIC
     Route: 048
     Dates: start: 20170520, end: 20170608

REACTIONS (1)
  - Alopecia [None]

NARRATIVE: CASE EVENT DATE: 20170529
